FAERS Safety Report 5030568-6 (Version None)
Quarter: 2006Q2

REPORT INFORMATION
  Report Type: 
  Country: None (occurrence: None)
  Receive Date: 20060614
  Receipt Date: 20060602
  Transmission Date: 20061013
  Serious: Yes (Hospitalization)
  Sender: FDA-Public Use
  Company Number: GBWYE683402JUN06

PATIENT
  Age: 45 Year
  Sex: Male

DRUGS (3)
  1. EFFEXOR [Suspect]
     Dosage: SEE IMAGE
     Dates: start: 20060501, end: 20060501
  2. EFFEXOR [Suspect]
     Dosage: SEE IMAGE
     Dates: end: 20060501
  3. EFFEXOR [Suspect]
     Dosage: SEE IMAGE
     Dates: start: 20060501

REACTIONS (2)
  - EPILEPSY [None]
  - PITTING OEDEMA [None]
